FAERS Safety Report 9277350 (Version 1)
Quarter: 2013Q2

REPORT INFORMATION
  Report Type: Report from Study
  Country: DE (occurrence: DE)
  Receive Date: 20130508
  Receipt Date: 20130508
  Transmission Date: 20140414
  Serious: Yes (Other)
  Sender: FDA-Public Use
  Company Number: DE-ROCHE-GNE255629

PATIENT
  Age: 67 Year
  Sex: 0

DRUGS (1)
  1. ALTEPLASE [Suspect]
     Indication: RETINAL VEIN OCCLUSION
     Route: 042

REACTIONS (1)
  - Retinal detachment [Unknown]
